FAERS Safety Report 16776050 (Version 7)
Quarter: 2021Q4

REPORT INFORMATION
  Report Type: Report from Study
  Country: JP (occurrence: JP)
  Receive Date: 20190905
  Receipt Date: 20211026
  Transmission Date: 20220303
  Serious: Yes (Other)
  Sender: FDA-Public Use
  Company Number: JP-JNJFOC-20190832168

PATIENT
  Age: 62 Year
  Sex: Male
  Weight: 61.2 kg

DRUGS (32)
  1. BEDAQUILINE [Suspect]
     Active Substance: BEDAQUILINE
     Indication: Pulmonary tuberculosis
     Route: 048
     Dates: start: 20190313, end: 20190326
  2. BEDAQUILINE [Suspect]
     Active Substance: BEDAQUILINE
     Route: 048
     Dates: start: 20190327, end: 20190701
  3. BEDAQUILINE [Suspect]
     Active Substance: BEDAQUILINE
     Route: 048
     Dates: start: 20190723
  4. ZYVOX [Suspect]
     Active Substance: LINEZOLID
     Indication: Pulmonary tuberculosis
     Route: 048
     Dates: start: 20190313, end: 20190621
  5. MEROPENEM [Suspect]
     Active Substance: MEROPENEM
     Indication: Pulmonary tuberculosis
     Route: 065
     Dates: start: 20190313, end: 20190701
  6. DELAMANID [Concomitant]
     Active Substance: DELAMANID
     Indication: Pulmonary tuberculosis
     Route: 048
     Dates: start: 20190313, end: 20190701
  7. DELAMANID [Concomitant]
     Active Substance: DELAMANID
     Indication: Pulmonary tuberculosis
     Route: 048
     Dates: start: 20190723
  8. CLOFAZIMINE [Concomitant]
     Active Substance: CLOFAZIMINE
     Indication: Pulmonary tuberculosis
     Route: 048
     Dates: start: 20190313, end: 20190701
  9. CLOFAZIMINE [Concomitant]
     Active Substance: CLOFAZIMINE
     Indication: Pulmonary tuberculosis
     Route: 048
     Dates: start: 20190723
  10. CYCLOSERINE [Concomitant]
     Active Substance: CYCLOSERINE
     Indication: Pulmonary tuberculosis
     Dosage: UNKNOWN
     Route: 048
     Dates: start: 20080723, end: 20090121
  11. CYCLOSERINE [Concomitant]
     Active Substance: CYCLOSERINE
     Indication: Pulmonary tuberculosis
     Route: 048
     Dates: start: 20190313, end: 20190701
  12. CYCLOSERINE [Concomitant]
     Active Substance: CYCLOSERINE
     Indication: Pulmonary tuberculosis
     Route: 048
     Dates: start: 20190723
  13. AMIKACIN SULFATE [Concomitant]
     Active Substance: AMIKACIN SULFATE
     Indication: Pulmonary tuberculosis
     Route: 065
     Dates: start: 20190313, end: 20190701
  14. NOVORAPID [Concomitant]
     Active Substance: INSULIN ASPART
     Indication: Diabetes mellitus
     Route: 065
     Dates: start: 20190313, end: 20190701
  15. NOVORAPID [Concomitant]
     Active Substance: INSULIN ASPART
     Indication: Diabetes mellitus
     Route: 065
     Dates: start: 20190723
  16. AMLODIPINE [Concomitant]
     Active Substance: AMLODIPINE BESYLATE
     Indication: Hypertension
     Route: 048
     Dates: end: 20190701
  17. AMLODIPINE [Concomitant]
     Active Substance: AMLODIPINE BESYLATE
     Indication: Hypertension
     Route: 048
     Dates: start: 20190723
  18. TRESIBA [Concomitant]
     Active Substance: INSULIN DEGLUDEC
     Indication: Diabetes mellitus
     Route: 065
     Dates: start: 20190313, end: 20190701
  19. METHYLCOBALAMIN [Concomitant]
     Active Substance: METHYLCOBALAMIN
     Indication: Hypoaesthesia
     Route: 048
     Dates: start: 20190621, end: 20190701
  20. METHYLCOBALAMIN [Concomitant]
     Active Substance: METHYLCOBALAMIN
     Indication: Neuralgia
     Route: 048
     Dates: start: 20190723
  21. MEXITIL [Concomitant]
     Active Substance: MEXILETINE HYDROCHLORIDE
     Indication: Hypoaesthesia
     Route: 048
     Dates: start: 20190622, end: 20190701
  22. BERIZYM [CELLULASE;DIASTASE;LIPASE;PANCREATIN] [Concomitant]
     Indication: Prophylaxis
     Route: 048
     Dates: start: 20190723
  23. DIMETHICONE [Concomitant]
     Active Substance: DIMETHICONE
     Indication: Abdominal distension
     Route: 048
     Dates: start: 20190723
  24. VONOPRAZAN FUMARATE [Concomitant]
     Active Substance: VONOPRAZAN FUMARATE
     Indication: Prophylaxis
     Route: 048
     Dates: start: 20190723
  25. FEXOFENADINE HYDROCHLORIDE [Concomitant]
     Active Substance: FEXOFENADINE HYDROCHLORIDE
     Indication: Pruritus
     Route: 048
     Dates: start: 20190723
  26. ETIZOLAM [Concomitant]
     Active Substance: ETIZOLAM
     Indication: Insomnia
     Route: 048
     Dates: start: 20190723
  27. BROTIZOLAM [Concomitant]
     Active Substance: BROTIZOLAM
     Indication: Insomnia
     Route: 048
     Dates: start: 20190723
  28. SENNOSIDES A AND B [Concomitant]
     Active Substance: SENNOSIDES A AND B
     Indication: Constipation
     Route: 048
     Dates: start: 20190723
  29. LYRICA [Concomitant]
     Active Substance: PREGABALIN
     Indication: Neuralgia
     Route: 048
     Dates: start: 20190723
  30. LYRICA [Concomitant]
     Active Substance: PREGABALIN
     Indication: Hypoaesthesia
     Dosage: DOSE UNKNOWN
     Route: 048
  31. CYMBALTA [Concomitant]
     Active Substance: DULOXETINE HYDROCHLORIDE
     Indication: Neuralgia
     Route: 048
     Dates: start: 20190723
  32. CYMBALTA [Concomitant]
     Active Substance: DULOXETINE HYDROCHLORIDE
     Indication: Hypoaesthesia
     Dosage: DOSE UNKNOWN
     Route: 048

REACTIONS (2)
  - Hypoaesthesia [Not Recovered/Not Resolved]
  - Liver disorder [Recovered/Resolved]

NARRATIVE: CASE EVENT DATE: 20190621
